FAERS Safety Report 4786940-2 (Version None)
Quarter: 2005Q3

REPORT INFORMATION
  Report Type: 
  Country: None (occurrence: None)
  Receive Date: 20050930
  Receipt Date: 20050919
  Transmission Date: 20060218
  Serious: Yes (Death, Congenital Anomaly)
  Sender: FDA-Public Use
  Company Number: 2005122253

PATIENT
  Sex: Female
  Weight: 1.8144 kg

DRUGS (2)
  1. VIRACEPT [Suspect]
     Indication: HIV TEST POSITIVE
     Dosage: 300 MG, ORAL
     Route: 048
     Dates: start: 20041115
  2. COMBIVIR [Suspect]
     Indication: HIV TEST POSITIVE
     Dosage: 900 MG, ORAL
     Route: 048
     Dates: start: 20041115

REACTIONS (5)
  - DYSTROPHIA MYOTONICA [None]
  - MATERNAL DRUGS AFFECTING FOETUS [None]
  - MICROGNATHIA [None]
  - PREMATURE BABY [None]
  - SPINA BIFIDA [None]
